FAERS Safety Report 13698488 (Version 5)
Quarter: 2018Q2

REPORT INFORMATION
  Report Type: Spontaneous
  Country: IT (occurrence: IT)
  Receive Date: 20170628
  Receipt Date: 20180518
  Transmission Date: 20180711
  Serious: Yes (Hospitalization, Other)
  Sender: FDA-Public Use
  Company Number: PHHY2017IT090983

PATIENT
  Age: 48 Year
  Sex: Female

DRUGS (4)
  1. QUETIAPINE. [Suspect]
     Active Substance: QUETIAPINE
     Dosage: UNK
     Route: 048
  2. LITHIUM. [Suspect]
     Active Substance: LITHIUM
     Indication: DRUG ABUSE
     Dosage: 415 MG, TOTAL
     Route: 048
     Dates: start: 20170524, end: 20170524
  3. QUETIAPINE. [Suspect]
     Active Substance: QUETIAPINE
     Indication: DRUG ABUSE
     Dosage: 1000 MG, TOTAL
     Route: 048
     Dates: start: 20170524, end: 20170524
  4. LORAZEPAM. [Suspect]
     Active Substance: LORAZEPAM
     Indication: DRUG ABUSE
     Dosage: 10 MG, TOTAL
     Route: 048
     Dates: start: 20170524, end: 20170524

REACTIONS (3)
  - Sopor [Unknown]
  - Poisoning [Unknown]
  - Drug abuse [Unknown]

NARRATIVE: CASE EVENT DATE: 20170524
